FAERS Safety Report 5733428-8 (Version None)
Quarter: 2008Q2

REPORT INFORMATION
  Report Type: 
  Country: None (occurrence: None)
  Receive Date: 20080509
  Receipt Date: 20080429
  Transmission Date: 20081010
  Serious: Yes (Hospitalization)
  Sender: FDA-Public Use
  Company Number: FR-GENENTECH-260622

PATIENT
  Sex: Female

DRUGS (5)
  1. MABTHERA [Suspect]
     Indication: RHEUMATOID ARTHRITIS
     Dosage: UNK, UNK
     Route: 042
  2. CIPROFLOXACIN HCL [Concomitant]
     Indication: BRONCHITIS
     Dosage: UNK, UNK
     Dates: start: 20071212, end: 20071217
  3. AMOXICILLIN [Concomitant]
     Indication: BRONCHITIS
     Dates: end: 20071201
  4. CEFTRIAXONE [Concomitant]
     Indication: BRONCHITIS
     Dates: end: 20071201
  5. GROWTH FACTOR NOS [Concomitant]
     Indication: NEUTROPENIA

REACTIONS (3)
  - AGRANULOCYTOSIS [None]
  - BRONCHITIS [None]
  - NEUTROPENIA [None]
